FAERS Safety Report 8539933-3 (Version None)
Quarter: 2012Q3

REPORT INFORMATION
  Report Type: 
  Country: None (occurrence: None)
  Receive Date: 20120726
  Receipt Date: 20120717
  Transmission Date: 20120928
  Serious: Yes (Other)
  Sender: FDA-Public Use
  Company Number: GB-TEVA-348728ISR

PATIENT
  Sex: Female

DRUGS (2)
  1. ZELBORAF [Suspect]
     Indication: MALIGNANT MELANOMA
  2. PHENYTOIN [Suspect]
     Indication: NERVOUS SYSTEM DISORDER

REACTIONS (2)
  - DRUG INTERACTION [None]
  - CONVULSION [None]
